FAERS Safety Report 5363028-3 (Version None)
Quarter: 2007Q2

REPORT INFORMATION
  Report Type: 
  Country: None (occurrence: None)
  Receive Date: 20070618
  Receipt Date: 20070604
  Transmission Date: 20071010
  Serious: Yes (Other)
  Sender: FDA-Public Use
  Company Number: 430001L07USA

PATIENT
  Age: 40 Year
  Sex: Female

DRUGS (1)
  1. MITOXANTRONE [Suspect]
     Dosage: 12 MG/M2, 1 IN 3 MONTHS

REACTIONS (6)
  - ACUTE LYMPHOCYTIC LEUKAEMIA [None]
  - DRUG DOSE OMISSION [None]
  - HYPERLIPIDAEMIA [None]
  - HYPERTENSION [None]
  - MYOCARDIAL INFARCTION [None]
  - PANCYTOPENIA [None]
